FAERS Safety Report 10398565 (Version 4)
Quarter: 2015Q1

REPORT INFORMATION
  Report Type: Report from Study
  Country: BR (occurrence: BR)
  Receive Date: 20140821
  Receipt Date: 20150123
  Transmission Date: 20150720
  Serious: Yes (Other)
  Sender: FDA-Public Use
  Company Number: PHHY2014BR102216

PATIENT
  Age: 34 Year
  Sex: Female
  Weight: 52 kg

DRUGS (1)
  1. GILENYA [Suspect]
     Active Substance: FINGOLIMOD HYDROCHLORIDE
     Indication: MULTIPLE SCLEROSIS
     Dosage: 1 DF, QD
     Route: 048
     Dates: start: 201305, end: 20141020

REACTIONS (18)
  - Cognitive disorder [Unknown]
  - Dyspepsia [Recovering/Resolving]
  - Muscular weakness [Recovering/Resolving]
  - Skin burning sensation [Recovering/Resolving]
  - Limb discomfort [Recovering/Resolving]
  - Cerebellar syndrome [Not Recovered/Not Resolved]
  - Burning sensation [Recovering/Resolving]
  - Discomfort [Not Recovered/Not Resolved]
  - Ataxia [Not Recovered/Not Resolved]
  - Balance disorder [Not Recovered/Not Resolved]
  - Multiple sclerosis relapse [Recovering/Resolving]
  - Pollakiuria [Recovering/Resolving]
  - Central nervous system lesion [Not Recovered/Not Resolved]
  - Gait disturbance [Recovering/Resolving]
  - Diplopia [Recovering/Resolving]
  - Dizziness [Not Recovered/Not Resolved]
  - Hemiparesis [Unknown]
  - Generalised tonic-clonic seizure [Recovered/Resolved]

NARRATIVE: CASE EVENT DATE: 2014
